FAERS Safety Report 9524130 (Version 1)
Quarter: 2013Q3

REPORT INFORMATION
  Report Type: Spontaneous
  Country: US (occurrence: None)
  Receive Date: 20130912
  Receipt Date: 20130912
  Transmission Date: 20140515
  Serious: Yes (Hospitalization)
  Sender: FDA-Public Use
  Company Number: None

PATIENT
  Age: 85 Year
  Sex: Male
  Weight: 79.38 kg

DRUGS (1)
  1. BACLOFEN [Suspect]
     Indication: MUSCLE RELAXANT THERAPY
     Dosage: 1/2 DOSAGE TWICE DAILY TAKEN BY MOUTH.
     Route: 048
     Dates: start: 20130815, end: 20130823

REACTIONS (4)
  - Overdose [None]
  - Somnolence [None]
  - Convulsion [None]
  - Mood swings [None]
